FAERS Safety Report 16232571 (Version 1)
Quarter: 2019Q2

REPORT INFORMATION
  Report Type: Spontaneous
  Country: US (occurrence: US)
  Receive Date: 20190424
  Receipt Date: 20190424
  Transmission Date: 20190711
  Serious: Yes (Other)
  Sender: FDA-Public Use
  Company Number: US-BAYER-2019-077972

PATIENT
  Sex: Female

DRUGS (5)
  1. PHILLIPS^ LAXATIVE DIETARY SUPPLEMENT [Suspect]
     Active Substance: MAGNESIUM OXIDE
     Dosage: UNK
  2. HEMORRHOID OINTMENT [PRAMOCAINE HYDROCHLORIDE\ZINC OXIDE] [Suspect]
     Active Substance: PRAMOXINE HYDROCHLORIDE\ZINC OXIDE
     Dosage: UNK
  3. HEMORRHOID RELIEF [HERBALS] [Suspect]
     Active Substance: HERBALS
     Dosage: UNK
  4. SEDATIVUM [Suspect]
     Active Substance: DIPHENHYDRAMINE HYDROCHLORIDE
     Dosage: UNK
  5. MILK OF MAGNESIA CHERRY [Suspect]
     Active Substance: MAGNESIUM HYDROXIDE
     Indication: GASTROINTESTINAL DISORDER
     Dosage: UNK
     Route: 048

REACTIONS (7)
  - Drug ineffective [Unknown]
  - Asthenia [Unknown]
  - Abdominal pain upper [Unknown]
  - Abdominal pain [Unknown]
  - Drug dependence [Unknown]
  - Hypertension [Unknown]
  - Change of bowel habit [Unknown]

NARRATIVE: CASE EVENT DATE: 201904
